FAERS Safety Report 4840460-5 (Version None)
Quarter: 2005Q4

REPORT INFORMATION
  Report Type: 
  Country: None (occurrence: None)
  Receive Date: 20051129
  Receipt Date: 20051129
  Transmission Date: 20060501
  Serious: Yes (Hospitalization)
  Sender: FDA-Public Use
  Company Number: None

PATIENT
  Sex: Male
  Weight: 60.5 kg

DRUGS (1)
  1. METFORMIN  500 MG [Suspect]
     Indication: DIABETES MELLITUS NON-INSULIN-DEPENDENT
     Dosage: 500 MG 3 TIMES DAILY PO
     Route: 048

REACTIONS (5)
  - ANION GAP INCREASED [None]
  - DIABETIC KETOACIDOSIS [None]
  - DRUG TOXICITY [None]
  - HYPOGLYCAEMIA [None]
  - METABOLIC ACIDOSIS [None]
